FAERS Safety Report 22145571 (Version 1)
Quarter: 2023Q1

REPORT INFORMATION
  Report Type: Report from Study
  Country: US (occurrence: US)
  Receive Date: 20230328
  Receipt Date: 20230328
  Transmission Date: 20230418
  Serious: Yes (Hospitalization)
  Sender: FDA-Public Use
  Company Number: US-MYLANLABS-2023M1032056

PATIENT
  Age: 38 Year
  Sex: Female

DRUGS (1)
  1. ZOLOFT [Suspect]
     Active Substance: SERTRALINE HYDROCHLORIDE
     Indication: Product used for unknown indication
     Dosage: UNK
     Route: 065

REACTIONS (6)
  - Ammonia increased [Unknown]
  - Aggression [Unknown]
  - Disruptive mood dysregulation disorder [Unknown]
  - Food refusal [Unknown]
  - Drug hypersensitivity [Unknown]
  - Refusal of treatment by patient [Unknown]
